FAERS Safety Report 7424047 (Version 19)
Quarter: 2014Q4

REPORT INFORMATION
  Report Type: Spontaneous
  Country: CA (occurrence: CA)
  Receive Date: 20100617
  Receipt Date: 20141224
  Transmission Date: 20150529
  Serious: Yes (Other)
  Sender: FDA-Public Use
  Company Number: CA-ROCHE-GNE303022

PATIENT
  Sex: Female
  Weight: 75.09 kg

DRUGS (10)
  1. XOLAIR [Suspect]
     Active Substance: OMALIZUMAB
     Route: 058
     Dates: start: 20140325
  2. XOLAIR [Suspect]
     Active Substance: OMALIZUMAB
     Route: 058
     Dates: start: 20140407
  3. XOLAIR [Suspect]
     Active Substance: OMALIZUMAB
     Indication: ASTHMA
     Route: 058
     Dates: start: 20050718
  4. XOLAIR [Suspect]
     Active Substance: OMALIZUMAB
     Route: 058
     Dates: start: 20130702
  5. XOLAIR [Suspect]
     Active Substance: OMALIZUMAB
     Route: 058
     Dates: start: 20130618
  6. XOLAIR [Suspect]
     Active Substance: OMALIZUMAB
     Route: 058
     Dates: start: 20050804
  7. VENTOLIN [Concomitant]
     Active Substance: ALBUTEROL SULFATE
     Indication: PRODUCT USED FOR UNKNOWN INDICATION
  8. XOLAIR [Suspect]
     Active Substance: OMALIZUMAB
     Route: 058
     Dates: start: 20130419
  9. XOLAIR [Suspect]
     Active Substance: OMALIZUMAB
     Route: 058
     Dates: start: 20130503
  10. SYMBICORT [Concomitant]
     Active Substance: BUDESONIDE\FORMOTEROL FUMARATE DIHYDRATE
     Indication: PRODUCT USED FOR UNKNOWN INDICATION

REACTIONS (20)
  - Hypersensitivity [Unknown]
  - Influenza [Not Recovered/Not Resolved]
  - Heart rate increased [Recovered/Resolved]
  - Oropharyngeal pain [Unknown]
  - Productive cough [Unknown]
  - Pain in extremity [Unknown]
  - Dyspnoea [Unknown]
  - Sputum discoloured [Unknown]
  - Respiratory rate increased [Unknown]
  - Nasal congestion [Unknown]
  - Wound [Unknown]
  - Upper respiratory tract infection [Unknown]
  - Lung infection [Unknown]
  - Bronchitis [Unknown]
  - Cough [Unknown]
  - Lower respiratory tract infection [Unknown]
  - Breath sounds abnormal [Unknown]
  - Blood pressure increased [Not Recovered/Not Resolved]
  - Nasopharyngitis [Unknown]
  - Breast pain [Unknown]
